FAERS Safety Report 4381081-0 (Version None)
Quarter: 2004Q2

REPORT INFORMATION
  Report Type: 
  Country: None (occurrence: None)
  Receive Date: 20040601
  Receipt Date: 20040212
  Transmission Date: 20050107
  Serious: No
  Sender: FDA-Public Use
  Company Number: FABR-10477

PATIENT
  Age: 34 Year
  Sex: Male
  Weight: 96 kg

DRUGS (2)
  1. FABRAZYME [Suspect]
     Indication: FABRY'S DISEASE
     Dosage: 96 MG Q2WKS IV
     Route: 042
     Dates: start: 20031124
  2. PREVACID [Concomitant]

REACTIONS (3)
  - CHILLS [None]
  - COUGH [None]
  - PYREXIA [None]
